FAERS Safety Report 8220989-2 (Version None)
Quarter: 2012Q1

REPORT INFORMATION
  Report Type: 
  Country: None (occurrence: None)
  Receive Date: 20120320
  Receipt Date: 20120309
  Transmission Date: 20120608
  Serious: Yes (Hospitalization)
  Sender: FDA-Public Use
  Company Number: US-BAYER-2012-018358

PATIENT
  Age: 74 Year
  Sex: Male

DRUGS (6)
  1. SECTRAL [Concomitant]
  2. CRESTOR [Concomitant]
  3. ASPIRIN [Suspect]
  4. XARELTO [Suspect]
     Indication: ATRIAL FIBRILLATION
     Dosage: 20 MG, HS
     Route: 065
  5. COQ10 [Concomitant]
  6. ZETIA [Concomitant]

REACTIONS (1)
  - EPISTAXIS [None]
